FAERS Safety Report 5383799-X (Version None)
Quarter: 2007Q3

REPORT INFORMATION
  Report Type: 
  Country: None (occurrence: None)
  Receive Date: 20070711
  Receipt Date: 20070627
  Transmission Date: 20080115
  Serious: No
  Sender: FDA-Public Use
  Company Number: NO-ELI_LILLY_AND_COMPANY-NO200706006187

PATIENT
  Age: 43 Year
  Sex: Male

DRUGS (3)
  1. ZYPREXA [Suspect]
     Indication: SCHIZOPHRENIA
     Dosage: 20 MG, DAILY (1/D)
     Route: 065
     Dates: start: 20070414, end: 20070601
  2. ZYPREXA [Suspect]
     Dosage: 15 MG, DAILY (1/D)
     Route: 065
     Dates: start: 20070601, end: 20070622
  3. SOLIAN [Concomitant]
     Indication: SCHIZOPHRENIA
     Dosage: 300 MG, 2/D
     Route: 065
     Dates: start: 20070612

REACTIONS (3)
  - BLOOD PROLACTIN INCREASED [None]
  - LEUKOPENIA [None]
  - NEUTROPENIA [None]
